FAERS Safety Report 8831381 (Version 4)
Quarter: 2013Q4

REPORT INFORMATION
  Report Type: Report from Study
  Country: JP (occurrence: JP)
  Receive Date: 20121008
  Receipt Date: 20131030
  Transmission Date: 20140711
  Serious: Yes (Other)
  Sender: FDA-Public Use
  Company Number: JP-VERTEX PHARMACEUTICAL INC.-2012-022062

PATIENT
  Age: 52 Year
  Sex: Female

DRUGS (22)
  1. VX-950 (TELAPREVIR) [Suspect]
     Indication: CHRONIC HEPATITIS C
     Dosage: 1500 MG, QD
     Route: 048
     Dates: start: 20120614, end: 20120906
  2. REBETOL [Suspect]
     Indication: CHRONIC HEPATITIS C
     Dosage: 600 MG, QD
     Route: 048
     Dates: start: 20120614, end: 20120704
  3. REBETOL [Suspect]
     Dosage: 400 MG, QD
     Route: 048
     Dates: start: 20120705, end: 20121122
  4. PEGINTRON [Suspect]
     Indication: CHRONIC HEPATITIS C
     Dosage: 1.5 ?G/KG, QW
     Route: 058
     Dates: start: 20120614, end: 20120816
  5. PEGINTRON [Suspect]
     Dosage: 0.8 ?G/KG, QW
     Route: 058
     Dates: start: 20120823, end: 20120823
  6. PEGINTRON [Suspect]
     Dosage: 1.5 ?G/KG, QW
     Route: 058
     Dates: start: 20120830, end: 20120906
  7. PEGINTRON [Suspect]
     Dosage: 0.8 ?G/KG, QW
     Route: 058
     Dates: start: 20120913, end: 20120927
  8. PEGINTRON [Suspect]
     Dosage: 1.5 ?G/KG, QW
     Route: 058
     Dates: start: 20121004, end: 20121004
  9. PEGINTRON [Suspect]
     Dosage: 0.8 ?G/KG, QW
     Route: 058
     Dates: start: 20121011, end: 20121011
  10. PEGINTRON [Suspect]
     Dosage: 1.5/KG, QW
     Route: 058
     Dates: start: 20121018, end: 20121018
  11. PEGINTRON [Suspect]
     Dosage: 0.8 ?G/KG, QW
     Route: 058
     Dates: start: 20121025, end: 20121025
  12. PEGINTRON [Suspect]
     Dosage: 1.5 ?G/KG, QW
     Route: 058
     Dates: start: 20121101, end: 20121108
  13. PEGINTRON [Suspect]
     Dosage: 0.8 ?G/KG, QW
     Route: 058
     Dates: start: 20121115, end: 20121115
  14. PEGINTRON [Suspect]
     Dosage: 0.8 ?G/KG, QW
     Route: 057
     Dates: start: 20121122, end: 20121122
  15. EBASTEL [Concomitant]
     Dosage: 10 MG, QD
     Route: 048
     Dates: end: 20120607
  16. EBASTEL [Concomitant]
     Dosage: 10 MG, QD
     Route: 048
     Dates: start: 20120618, end: 20120704
  17. IPD [Concomitant]
     Dosage: 200 MG, QD
     Route: 048
     Dates: end: 20120607
  18. IPD [Concomitant]
     Dosage: 200 MG, QD
     Route: 048
     Dates: start: 20120625, end: 20121122
  19. EBASTINE [Concomitant]
     Dosage: 10 MG, UNK
     Route: 048
     Dates: start: 20120705, end: 20121122
  20. CRAVIT [Concomitant]
     Dosage: 500 MG, QD
     Route: 048
     Dates: start: 20120809, end: 20120813
  21. FULMETA [Concomitant]
     Dosage: ONCE OR TWICE PER DAY, APPLICATION (BODY AND LIMBS)
     Route: 061
  22. HIRUDOID [Concomitant]
     Dosage: ONCE OR TWICE PER DAY, APPLICATION (BODY AND LIMBS)
     Route: 061

REACTIONS (3)
  - White blood cell count decreased [Recovered/Resolved]
  - Neutrophil count decreased [Recovered/Resolved]
  - White blood cell count decreased [Recovered/Resolved]
